FAERS Safety Report 16023618 (Version 1)
Quarter: 2019Q1

REPORT INFORMATION
  Report Type: Spontaneous
  Country: BE (occurrence: BE)
  Receive Date: 20190301
  Receipt Date: 20190301
  Transmission Date: 20190418
  Serious: Yes (Disabling)
  Sender: FDA-Public Use
  Company Number: BE-009507513-1902BEL010177

PATIENT
  Age: 65 Year
  Sex: Female

DRUGS (7)
  1. LYSOMUCIL [Concomitant]
     Active Substance: ACETYLCYSTEINE
     Dates: start: 20190103
  2. JANUVIA [Suspect]
     Active Substance: SITAGLIPTIN PHOSPHATE
     Dosage: UNK
  3. PANTOMED (PANTOPRAZOLE SODIUM) [Suspect]
     Active Substance: PANTOPRAZOLE SODIUM
  4. COMBIVENT [Concomitant]
     Active Substance: ALBUTEROL SULFATE\IPRATROPIUM BROMIDE
  5. UNI DIAMICRON [Concomitant]
     Active Substance: GLICLAZIDE
  6. PULMICORT TURBUHALER [Suspect]
     Active Substance: BUDESONIDE
     Route: 055
     Dates: start: 20190203
  7. ZESTRIL [Concomitant]
     Active Substance: LISINOPRIL

REACTIONS (1)
  - Palpitations [Recovered/Resolved]
